FAERS Safety Report 4300602-7 (Version None)
Quarter: 2004Q1

REPORT INFORMATION
  Report Type: 
  Country: None (occurrence: None)
  Receive Date: 20040218
  Receipt Date: 20040203
  Transmission Date: 20041129
  Serious: Yes (Other)
  Sender: FDA-Public Use
  Company Number: US_991232995

PATIENT
  Age: 54 Year
  Sex: Female
  Weight: 128 kg

DRUGS (7)
  1. HUMULIN - HUMAN INSULIN (RDNA) :30% REGULAR, 70% NPH [Suspect]
     Indication: DIABETES MELLITUS INSULIN-DEPENDENT
     Dosage: 100 U/DAY
     Dates: start: 19900101
  2. HUMALOG [Suspect]
     Indication: DIABETES MELLITUS INSULIN-DEPENDENT
     Dates: start: 19981201
  3. HUMULIN N [Suspect]
     Indication: DIABETES MELLITUS INSULIN-DEPENDENT
     Dosage: 100 U/DAY
     Dates: start: 19900101
  4. CELESTONE [Concomitant]
  5. SYNTHROID [Concomitant]
  6. ELOCON [Concomitant]
  7. TROGLITAZONE [Concomitant]

REACTIONS (24)
  - ASTHMA EXERCISE INDUCED [None]
  - BLOOD GLUCOSE INCREASED [None]
  - CARDIAC DISORDER [None]
  - DEVICE FAILURE [None]
  - DIABETES MELLITUS INADEQUATE CONTROL [None]
  - DIABETIC NEUROPATHY [None]
  - DRUG INEFFECTIVE [None]
  - ECZEMA [None]
  - EYE MOVEMENT DISORDER [None]
  - FLUID RETENTION [None]
  - HEPATIC FAILURE [None]
  - INJECTION SITE ERYTHEMA [None]
  - INSULIN RESISTANCE [None]
  - MEDICATION ERROR [None]
  - MYOCARDIAL INFARCTION [None]
  - PHARMACEUTICAL PRODUCT COMPLAINT [None]
  - PSORIASIS [None]
  - RENAL IMPAIRMENT [None]
  - ROAD TRAFFIC ACCIDENT [None]
  - ROSACEA [None]
  - SKIN INFECTION [None]
  - STRESS SYMPTOMS [None]
  - THIRST [None]
  - WEIGHT INCREASED [None]
